FAERS Safety Report 5878944-3 (Version None)
Quarter: 2008Q3

REPORT INFORMATION
  Report Type: 
  Country: None (occurrence: None)
  Receive Date: 20080912
  Receipt Date: 20080828
  Transmission Date: 20090109
  Serious: Yes (Hospitalization)
  Sender: FDA-Public Use
  Company Number: US-ELI_LILLY_AND_COMPANY-US200808006318

PATIENT
  Age: 57 Year
  Sex: Male

DRUGS (1)
  1. XIGRIS [Suspect]
     Indication: SEPSIS
     Dosage: OTHER; APPROXIMATELY 24 HRS
     Route: 042
     Dates: start: 20080827, end: 20080828

REACTIONS (1)
  - LEG AMPUTATION [None]
